FAERS Safety Report 9587099 (Version 1)
Quarter: 2013Q4

REPORT INFORMATION
  Report Type: Spontaneous
  Country: GB (occurrence: GB)
  Receive Date: 20131003
  Receipt Date: 20131003
  Transmission Date: 20140711
  Serious: Yes (Other)
  Sender: FDA-Public Use
  Company Number: GB-009507513-1309GBR014215

PATIENT
  Sex: 0

DRUGS (1)
  1. NOXAFIL [Suspect]
     Route: 048

REACTIONS (1)
  - Hearing impaired [Unknown]
